FAERS Safety Report 11439490 (Version 1)
Quarter: 2015Q3

REPORT INFORMATION
  Report Type: Spontaneous
  Country: US (occurrence: US)
  Receive Date: 20150901
  Receipt Date: 20150901
  Transmission Date: 20151125
  Serious: No
  Sender: FDA-Public Use
  Company Number: US-ROCHE-1140728

PATIENT
  Sex: Female

DRUGS (4)
  1. COPEGUS [Suspect]
     Active Substance: RIBAVIRIN
     Indication: HEPATITIS C
     Route: 048
     Dates: start: 20120620, end: 20120925
  2. PEGASYS [Suspect]
     Active Substance: PEGINTERFERON ALFA-2A
     Indication: HEPATITIS C
     Route: 058
     Dates: start: 20120620, end: 20120925
  3. VICTRELIS [Suspect]
     Active Substance: BOCEPREVIR
     Indication: HEPATITIS C
     Route: 048
     Dates: start: 20120720, end: 20120925
  4. NEURONTIN [Concomitant]
     Active Substance: GABAPENTIN
     Route: 048

REACTIONS (5)
  - Pain [Recovered/Resolved]
  - Hyperhidrosis [Recovered/Resolved]
  - Pain [Unknown]
  - Diarrhoea [Recovered/Resolved]
  - Hot flush [Recovered/Resolved]
